FAERS Safety Report 15039741 (Version 1)
Quarter: 2018Q2

REPORT INFORMATION
  Report Type: Spontaneous
  Country: US (occurrence: US)
  Receive Date: 20180620
  Receipt Date: 20180620
  Transmission Date: 20180711
  Serious: No
  Sender: FDA-Public Use
  Company Number: US-BIOGEN-2018BI00595785

PATIENT
  Sex: Female

DRUGS (1)
  1. TYSABRI [Suspect]
     Active Substance: NATALIZUMAB
     Indication: MULTIPLE SCLEROSIS
     Route: 042
     Dates: start: 20061116

REACTIONS (6)
  - Drug dose omission [Unknown]
  - Musculoskeletal disorder [Recovered/Resolved]
  - Fatigue [Unknown]
  - Loss of control of legs [Recovered/Resolved]
  - Inappropriate schedule of drug administration [Unknown]
  - Speech disorder [Unknown]

NARRATIVE: CASE EVENT DATE: 2011
